FAERS Safety Report 25467995 (Version 4)
Quarter: 2025Q3

REPORT INFORMATION
  Report Type: Spontaneous
  Country: US (occurrence: US)
  Receive Date: 20250623
  Receipt Date: 20250723
  Transmission Date: 20251021
  Serious: No
  Sender: PFIZER
  Company Number: US-PFIZER INC-202500123917

PATIENT
  Age: 26 Year
  Sex: Female

DRUGS (1)
  1. GENOTROPIN [Suspect]
     Active Substance: SOMATROPIN
     Dosage: 0.3 MG, DAILY

REACTIONS (5)
  - Device dispensing error [Unknown]
  - Drug dose omission by device [Unknown]
  - Device use error [Unknown]
  - Drug-device incompatibility [Unknown]
  - Device leakage [Unknown]
